FAERS Safety Report 9658939 (Version 5)
Quarter: 2014Q1

REPORT INFORMATION
  Report Type: Spontaneous
  Country: CA (occurrence: CA)
  Receive Date: 20131031
  Receipt Date: 20140326
  Transmission Date: 20141002
  Serious: Yes (Hospitalization, Other)
  Sender: FDA-Public Use
  Company Number: CA-ROCHE-1296116

PATIENT
  Sex: Female

DRUGS (7)
  1. XOLAIR [Suspect]
     Indication: ASTHMA
     Route: 058
     Dates: start: 20130226
  2. XOLAIR [Suspect]
     Route: 058
     Dates: start: 20130312
  3. THEOPHYLLINE [Concomitant]
  4. VENTOLIN [Concomitant]
  5. ATROVENT [Concomitant]
  6. ADVAIR [Concomitant]
  7. PREDNISONE [Concomitant]

REACTIONS (4)
  - Renal failure chronic [Unknown]
  - Infection [Unknown]
  - Sepsis [Unknown]
  - Pyrexia [Unknown]
